FAERS Safety Report 5343435-5 (Version None)
Quarter: 2007Q2

REPORT INFORMATION
  Report Type: 
  Country: None (occurrence: None)
  Receive Date: 20070531
  Receipt Date: 20070515
  Transmission Date: 20071010
  Serious: Yes (Hospitalization)
  Sender: FDA-Public Use
  Company Number: PAR_01568_2007

PATIENT
  Age: 51 Year
  Sex: Male

DRUGS (5)
  1. FLUOXETINE [Suspect]
     Dosage: 40 MG QD
  2. BUPROPION ( BUPROPION SR) [Suspect]
     Dosage: 150 MG QD
  3. BROMAZEPAM [Concomitant]
  4. ALPRAZOLAM [Concomitant]
  5. 000 [Concomitant]

REACTIONS (12)
  - ALTERED STATE OF CONSCIOUSNESS [None]
  - ANXIETY [None]
  - ASTHENIA [None]
  - DELIRIUM [None]
  - DEPRESSED MOOD [None]
  - DISORIENTATION [None]
  - DISTURBANCE IN ATTENTION [None]
  - ELECTROENCEPHALOGRAM [None]
  - ELECTROENCEPHALOGRAM ABNORMAL [None]
  - HALLUCINATION, AUDITORY [None]
  - ILLUSION [None]
  - MEMORY IMPAIRMENT [None]
